FAERS Safety Report 17239875 (Version 2)
Quarter: 2021Q2

REPORT INFORMATION
  Report Type: Spontaneous
  Country: US (occurrence: US)
  Receive Date: 20200106
  Receipt Date: 20210420
  Transmission Date: 20210716
  Serious: Yes (Death, Hospitalization, Other)
  Sender: FDA-Public Use
  Company Number: US-AMGEN-USASP2019217856

PATIENT
  Age: 54 Year
  Sex: Female

DRUGS (11)
  1. PANITUMUMAB [Suspect]
     Active Substance: PANITUMUMAB
     Dosage: 6 MILLIGRAM/KILOGRAM, Q2WK
     Route: 042
     Dates: start: 20180906, end: 20180919
  2. FOLINIC ACID [Concomitant]
     Active Substance: LEUCOVORIN
     Indication: ADENOCARCINOMA OF COLON
     Dosage: UNK
  3. TIPIRACIL [Concomitant]
     Active Substance: TIPIRACIL
     Indication: ADENOCARCINOMA OF COLON
     Dosage: UNK
  4. PANITUMUMAB [Suspect]
     Active Substance: PANITUMUMAB
     Indication: ADENOCARCINOMA OF COLON
     Dosage: UNK
     Route: 065
  5. TRIFLURIDINE. [Concomitant]
     Active Substance: TRIFLURIDINE
     Indication: ADENOCARCINOMA OF COLON
     Dosage: UNK
  6. ULIXERTINIB. [Suspect]
     Active Substance: ULIXERTINIB
     Indication: ADENOCARCINOMA OF COLON
     Dosage: 600 MILLIGRAM, BID
     Route: 048
     Dates: start: 20180801, end: 20180919
  7. IRINOTECAN [Concomitant]
     Active Substance: IRINOTECAN
     Indication: ADENOCARCINOMA OF COLON
     Dosage: UNK
     Dates: start: 2018, end: 2018
  8. OXALIPLATIN. [Concomitant]
     Active Substance: OXALIPLATIN
     Indication: ADENOCARCINOMA OF COLON
     Dosage: UNK
  9. 5?FU [FLUOROURACIL] [Concomitant]
     Active Substance: FLUOROURACIL
     Indication: ADENOCARCINOMA OF COLON
     Dosage: UNK
  10. TRAMETINIB [Concomitant]
     Active Substance: TRAMETINIB
     Indication: ADENOCARCINOMA OF COLON
     Dosage: UNK
     Dates: start: 20171107, end: 20180214
  11. BEVACIZUMAB. [Concomitant]
     Active Substance: BEVACIZUMAB
     Indication: ADENOCARCINOMA OF COLON
     Dosage: UNK
     Dates: start: 2018, end: 2018

REACTIONS (4)
  - Colorectal cancer metastatic [Fatal]
  - Drug intolerance [Unknown]
  - Nausea [Unknown]
  - Vomiting [Unknown]

NARRATIVE: CASE EVENT DATE: 201809
